FAERS Safety Report 12469579 (Version 2)
Quarter: 2016Q2

REPORT INFORMATION
  Report Type: Report from Study
  Country: NL (occurrence: NL)
  Receive Date: 20160615
  Receipt Date: 20160621
  Transmission Date: 20160815
  Serious: Yes (Other)
  Sender: FDA-Public Use
  Company Number: NL-ABBVIE-16P-114-1650500-00

PATIENT
  Sex: Female

DRUGS (1)
  1. DUODOPA [Suspect]
     Active Substance: CARBIDOPA\LEVODOPA
     Indication: PARKINSON^S DISEASE
     Dosage: MORNING DOSE: 6.5, CONTINUOUS DOSE: 1.3, EXTRA DOSE: 1.0
     Route: 050
     Dates: start: 20160509

REACTIONS (9)
  - Freezing phenomenon [Not Recovered/Not Resolved]
  - Drug effect decreased [Recovered/Resolved]
  - On and off phenomenon [Not Recovered/Not Resolved]
  - Drug ineffective [Not Recovered/Not Resolved]
  - Stoma site pain [Recovered/Resolved]
  - Device difficult to use [Unknown]
  - Stoma site candida [Not Recovered/Not Resolved]
  - Insomnia [Not Recovered/Not Resolved]
  - Posture abnormal [Not Recovered/Not Resolved]
